FAERS Safety Report 21103808 (Version 1)
Quarter: 2022Q3

REPORT INFORMATION
  Report Type: Spontaneous
  Country: US (occurrence: US)
  Receive Date: 20220720
  Receipt Date: 20220720
  Transmission Date: 20221027
  Serious: No
  Sender: FDA-Public Use
  Company Number: US-AVET LIFESCIENCES LTD-2022-AVET-000122

PATIENT

DRUGS (9)
  1. VERAPAMIL HYDROCHLORIDE [Suspect]
     Active Substance: VERAPAMIL HYDROCHLORIDE
     Indication: Atrial fibrillation
     Dosage: 40 MILLIGRAM, 3 DOSE PER 1 D
     Route: 048
  2. ADVAIR HFA [Concomitant]
     Active Substance: FLUTICASONE PROPIONATE\SALMETEROL XINAFOATE
  3. ELIQUIS [Concomitant]
     Active Substance: APIXABAN
  4. BENADRYL [Concomitant]
     Active Substance: DIPHENHYDRAMINE HYDROCHLORIDE
  5. MELATONIN [Concomitant]
     Active Substance: MELATONIN
  6. COENZYME Q10 [Concomitant]
     Active Substance: DIETARY SUPPLEMENT\UBIDECARENONE
  7. ALBUTEROL [Concomitant]
     Active Substance: ALBUTEROL
  8. TRAMADOL [Concomitant]
     Active Substance: TRAMADOL
  9. VALERIAN [Concomitant]
     Active Substance: VALERIAN

REACTIONS (2)
  - Limb discomfort [Unknown]
  - Muscle spasms [Unknown]
